FAERS Safety Report 9448958 (Version 1)
Quarter: 2013Q3

REPORT INFORMATION
  Report Type: Report from Study
  Country: US (occurrence: US)
  Receive Date: 20130808
  Receipt Date: 20130808
  Transmission Date: 20140515
  Serious: Yes (Other)
  Sender: FDA-Public Use
  Company Number: US-ROCHE-1254954

PATIENT
  Sex: 0

DRUGS (2)
  1. BEVACIZUMAB [Suspect]
     Indication: MALIGNANT MELANOMA
     Route: 042
  2. TEMSIROLIMUS [Suspect]
     Indication: MALIGNANT MELANOMA
     Route: 042

REACTIONS (13)
  - Lymphopenia [Unknown]
  - Hypokalaemia [Unknown]
  - Hypophosphataemia [Unknown]
  - Weight decreased [Unknown]
  - Haemoglobin decreased [Unknown]
  - Decreased appetite [Unknown]
  - Nausea [Unknown]
  - Stomatitis [Unknown]
  - Abdominal pain [Unknown]
  - Hypertension [Unknown]
  - Opportunistic infection [Unknown]
  - CD4 lymphocytes decreased [Unknown]
  - Headache [Unknown]
